FAERS Safety Report 9390798 (Version 6)
Quarter: 2015Q3

REPORT INFORMATION
  Report Type: Spontaneous
  Country: US (occurrence: US)
  Receive Date: 20130709
  Receipt Date: 20150911
  Transmission Date: 20151125
  Serious: Yes (Other)
  Sender: FDA-Public Use
  Company Number: US-BAYER-2013-083265

PATIENT
  Age: 26 Year
  Sex: Female
  Weight: 45.35 kg

DRUGS (11)
  1. NORCO [Concomitant]
     Active Substance: ACETAMINOPHEN\HYDROCODONE BITARTRATE
     Dosage: 5/325 Q 6 HRS PRN (INTERPRETED AS AS NEEDED
     Dates: start: 20120816
  2. DEPO-PROVERA [Concomitant]
     Active Substance: MEDROXYPROGESTERONE ACETATE
  3. ULTRAM [Concomitant]
     Active Substance: TRAMADOL HYDROCHLORIDE
     Dosage: 50 MG, INTERPRETED AS EVERY) 4-6 HOURS PRN (INTERPRETED AS AS NEEDED)
     Route: 048
  4. FIORICET [Concomitant]
     Active Substance: ACETAMINOPHEN\BUTALBITAL\CAFFEINE
  5. IBUPROFEN. [Concomitant]
     Active Substance: IBUPROFEN
     Dosage: 600 MG, QID
     Dates: start: 20120816
  6. DEPAKOTE [Concomitant]
     Active Substance: DIVALPROEX SODIUM
     Dosage: 250 MG, BID
     Route: 048
  7. ZOFRAN [Concomitant]
     Active Substance: ONDANSETRON HYDROCHLORIDE
     Dosage: 4 MG, UNK
     Route: 048
  8. MIRENA [Suspect]
     Active Substance: LEVONORGESTREL
     Dosage: UNK
     Dates: start: 20130816, end: 20130816
  9. BACTRIM DS [Concomitant]
     Active Substance: SULFAMETHOXAZOLE\TRIMETHOPRIM
  10. KETOROLAC [Concomitant]
     Active Substance: KETOROLAC\KETOROLAC TROMETHAMINE
     Dosage: 60 MG, UNK
     Route: 030
  11. MIRENA [Suspect]
     Active Substance: LEVONORGESTREL
     Dosage: 20 MCG/24HR, CONT
     Route: 015
     Dates: start: 20120816, end: 20120914

REACTIONS (17)
  - Genital haemorrhage [None]
  - Uterine perforation [None]
  - Medical device complication [None]
  - Abdominal pain [None]
  - Depressed mood [None]
  - Pelvic pain [None]
  - Anxiety [None]
  - Device issue [None]
  - Internal injury [None]
  - Pain [None]
  - Medical device discomfort [None]
  - Emotional distress [None]
  - Device dislocation [None]
  - Depression [None]
  - Medical device pain [None]
  - Injury [None]
  - Fear [None]

NARRATIVE: CASE EVENT DATE: 2012
